FAERS Safety Report 6464188-3 (Version None)
Quarter: 2009Q4

REPORT INFORMATION
  Report Type: 
  Country: None (occurrence: None)
  Receive Date: 20091201
  Receipt Date: 20091016
  Transmission Date: 20100525
  Serious: Yes (Disabling)
  Sender: FDA-Public Use
  Company Number: PHHY2009ES44715

PATIENT
  Sex: Female

DRUGS (2)
  1. EXTAVIA [Suspect]
     Indication: MULTIPLE SCLEROSIS
     Dosage: 0.25 MG, UNK
     Route: 058
  2. EXTAVIA [Suspect]
     Dosage: 0.5 MG, UNK
     Route: 058
     Dates: start: 20090709, end: 20090915

REACTIONS (4)
  - DECREASED ACTIVITY [None]
  - DEPRESSION [None]
  - FEELING ABNORMAL [None]
  - MULTIPLE SCLEROSIS RELAPSE [None]
